FAERS Safety Report 21692225 (Version 2)
Quarter: 2022Q4

REPORT INFORMATION
  Report Type: Spontaneous
  Country: FR (occurrence: FR)
  Receive Date: 20221207
  Receipt Date: 20221231
  Transmission Date: 20230112
  Serious: Yes (Other)
  Sender: FDA-Public Use
  Company Number: FR-ViiV Healthcare Limited-64367

PATIENT
  Age: 68 Year
  Sex: Male

DRUGS (10)
  1. LAMIVUDINE [Suspect]
     Active Substance: LAMIVUDINE
     Indication: HIV infection
     Dosage: 1 DOSAGE FORM, ONCE A DAY(1 DF, QD )
     Route: 048
     Dates: start: 201612
  2. LAMIVUDINE [Suspect]
     Active Substance: LAMIVUDINE
     Dosage: 0.5 DOSAGE FORM(0.5 DF EVERY 2 DAYS )
     Route: 048
  3. LAMIVUDINE [Suspect]
     Active Substance: LAMIVUDINE
     Dosage: 300 MILLIGRAM, ONCE A DAY(300 MG, QD)
     Route: 048
  4. TIVICAY [Suspect]
     Active Substance: DOLUTEGRAVIR SODIUM
     Indication: Product used for unknown indication
     Dosage: 3 DOSAGE FORM, ONCE A DAY
     Route: 048
  5. TIVICAY [Suspect]
     Active Substance: DOLUTEGRAVIR SODIUM
     Indication: HIV infection
     Dosage: 4 DOSAGE FORM, ONCE A DAY
     Route: 048
  6. TIVICAY [Suspect]
     Active Substance: DOLUTEGRAVIR SODIUM
     Dosage: 50 MILLIGRAM
     Route: 048
  7. TIVICAY [Suspect]
     Active Substance: DOLUTEGRAVIR SODIUM
     Dosage: 2 DOSAGE FORM, ONCE A DAY
     Route: 048
  8. TIVICAY [Suspect]
     Active Substance: DOLUTEGRAVIR SODIUM
     Dosage: 1 DOSAGE FORM, ONCE A DAY
     Route: 048
  9. TIVICAY [Suspect]
     Active Substance: DOLUTEGRAVIR SODIUM
     Dosage: 0.5 DOSAGE FORM, ONCE A DAY
     Route: 048
  10. TIVICAY [Suspect]
     Active Substance: DOLUTEGRAVIR SODIUM
     Dosage: 0.5 DOSAGE FORM(0.5 DF EVERY 2 DAYS)
     Route: 048

REACTIONS (13)
  - Angina pectoris [Recovered/Resolved]
  - Tinnitus [Recovering/Resolving]
  - Palpitations [Recovering/Resolving]
  - Cardiac disorder [Unknown]
  - Headache [Unknown]
  - Sensation of blood flow [Unknown]
  - Feeling abnormal [Unknown]
  - Product dose omission issue [Unknown]
  - Incorrect dose administered [Unknown]
  - Intentional product misuse [Unknown]
  - Product communication issue [Unknown]
  - Overdose [Unknown]
  - Wrong technique in product usage process [Unknown]

NARRATIVE: CASE EVENT DATE: 20161229
